FAERS Safety Report 8362938-2 (Version None)
Quarter: 2012Q2

REPORT INFORMATION
  Report Type: 
  Country: None (occurrence: None)
  Receive Date: 20120514
  Receipt Date: 20120514
  Transmission Date: 20120825
  Serious: No
  Sender: FDA-Public Use
  Company Number: None

PATIENT
  Age: 13 Year
  Sex: Female
  Weight: 86.1834 kg

DRUGS (1)
  1. TAMIFLU [Suspect]
     Indication: INFLUENZA
     Dosage: 12.5 ML TWICE DAILY PO
     Route: 048
     Dates: start: 20120509, end: 20120510

REACTIONS (6)
  - VERTIGO [None]
  - NAUSEA [None]
  - HYPERHIDROSIS [None]
  - DYSGEUSIA [None]
  - PAROSMIA [None]
  - TEMPERATURE REGULATION DISORDER [None]
